FAERS Safety Report 23159585 (Version 1)
Quarter: 2023Q4

REPORT INFORMATION
  Report Type: Spontaneous
  Country: MX (occurrence: MX)
  Receive Date: 20231108
  Receipt Date: 20231108
  Transmission Date: 20240110
  Serious: No
  Sender: FDA-Public Use
  Company Number: MX-GLAXOSMITHKLINE-MX2023AMR066012

PATIENT
  Sex: Male

DRUGS (1)
  1. DUTASTERIDE [Suspect]
     Active Substance: DUTASTERIDE
     Indication: Alopecia
     Dosage: 3 DF, WE
     Route: 065

REACTIONS (5)
  - Muscle spasms [Unknown]
  - Testicular swelling [Unknown]
  - Product use in unapproved indication [Unknown]
  - Product prescribing issue [Unknown]
  - Drug effective for unapproved indication [Unknown]
